FAERS Safety Report 10018219 (Version 1)
Quarter: 2014Q1

REPORT INFORMATION
  Report Type: Spontaneous
  Country: US (occurrence: US)
  Receive Date: 20140318
  Receipt Date: 20140318
  Transmission Date: 20141002
  Serious: Yes (Death)
  Sender: FDA-Public Use
  Company Number: US-BRISTOL-MYERS SQUIBB COMPANY-19367077

PATIENT
  Age: 63 Year
  Sex: Male
  Weight: 66.85 kg

DRUGS (1)
  1. ERBITUX [Suspect]
     Indication: LUNG NEOPLASM MALIGNANT
     Dosage: LOT#C1200163,EXP DATE: 31JUL2015?SRENGTH:200 MG/100 ML, 100MG/50 ML
     Dates: start: 20130417

REACTIONS (2)
  - Malignant neoplasm progression [Fatal]
  - Off label use [Unknown]
